FAERS Safety Report 9707893 (Version 4)
Quarter: 2014Q1

REPORT INFORMATION
  Report Type: Report from Study
  Country: JP (occurrence: JP)
  Receive Date: 20131125
  Receipt Date: 20140226
  Transmission Date: 20141002
  Serious: Yes (Death)
  Sender: FDA-Public Use
  Company Number: JP-ABBVIE-13P-087-1103564-00

PATIENT
  Age: 61 Year
  Sex: Male
  Weight: 49.5 kg

DRUGS (17)
  1. HUMIRA [Suspect]
     Indication: BEHCET^S SYNDROME
     Route: 058
     Dates: start: 20130604, end: 20130604
  2. PREDNISOLONE [Concomitant]
     Indication: BEHCET^S SYNDROME
     Dates: start: 20130418, end: 20130430
  3. PREDNISOLONE [Concomitant]
     Dates: start: 20130501, end: 20130521
  4. PREDNISOLONE [Concomitant]
     Dates: start: 20130522, end: 20130603
  5. PREDNISOLONE [Concomitant]
     Dates: start: 20130604
  6. RCC-LR [Concomitant]
     Dates: start: 20130413
  7. RCC-LR [Concomitant]
     Dates: start: 20130428
  8. RCC-LR [Concomitant]
     Dates: start: 20130504
  9. RCC-LR [Concomitant]
     Dates: start: 20130508
  10. RCC-LR [Concomitant]
     Dates: start: 20130515
  11. RCC-LR [Concomitant]
     Dates: start: 20130516
  12. RCC-LR [Concomitant]
     Dates: start: 20130527
  13. RCC-LR [Concomitant]
     Dates: start: 20130531
  14. RCC-LR [Concomitant]
     Dates: start: 20130603
  15. RCC-LR [Concomitant]
     Dates: start: 20130604
  16. RCC-LR [Concomitant]
     Dates: start: 20130605
  17. RCC-LR [Concomitant]
     Dates: start: 20130607

REACTIONS (3)
  - Behcet^s syndrome [Fatal]
  - Shock haemorrhagic [Fatal]
  - White blood cell count increased [Fatal]
